FAERS Safety Report 5169352-1 (Version None)
Quarter: 2006Q4

REPORT INFORMATION
  Report Type: 
  Country: None (occurrence: None)
  Receive Date: 20061211
  Receipt Date: 20061102
  Transmission Date: 20070319
  Serious: Yes (Disabling)
  Sender: FDA-Public Use
  Company Number: JP-ELI_LILLY_AND_COMPANY-JP200611000970

PATIENT
  Age: 76 Year
  Sex: Female
  Weight: 51.2 kg

DRUGS (15)
  1. EVISTA [Suspect]
     Indication: OSTEOPOROSIS POSTMENOPAUSAL
     Dosage: 60 MG, DAILY (1/D)
     Route: 048
     Dates: end: 20060501
  2. EVISTA [Suspect]
     Dosage: 60 MG, DAILY (1/D)
     Route: 048
     Dates: start: 20061007, end: 20061023
  3. CEROCRAL [Concomitant]
     Indication: MENIERE'S DISEASE
     Dosage: 20 MG, 2/D
     Route: 048
  4. SULINDAC [Concomitant]
     Indication: BACK PAIN
     Dosage: 100 MG, 2/D
     Route: 048
     Dates: start: 20061007, end: 20061012
  5. SULINDAC [Concomitant]
     Dosage: 100 MG, 2/D
     Route: 048
     Dates: start: 20061021
  6. RANTAC [Concomitant]
     Indication: GASTRIC ULCER
     Dosage: 150 MG, 2/D
     Route: 048
     Dates: start: 20061007
  7. MAGNESIUM OXIDE [Concomitant]
     Indication: CONSTIPATION
     Dosage: 0.67 G, 3/D
     Route: 048
     Dates: start: 20061014
  8. AZUCURENIN S [Concomitant]
     Indication: GASTRIC ULCER
     Dosage: 0.67 G, 3/D
     Route: 048
     Dates: start: 20061021
  9. ALFAROL [Concomitant]
     Indication: OSTEOPOROSIS POSTMENOPAUSAL
     Dosage: 0.5 UG, DAILY (1/D)
     Route: 048
  10. NORVASC [Concomitant]
     Indication: HYPERTENSION
     Dosage: 2.5 MG, DAILY (1/D)
     Route: 048
  11. MERISLON [Concomitant]
     Indication: MENIERE'S DISEASE
     Dosage: 6 MG, 3/D
     Route: 048
  12. DOGMATYL [Concomitant]
     Dosage: 50 MG, 2/D
     Route: 048
  13. DEPAS [Concomitant]
     Dosage: 0.5 MG, DAILY (1/D)
     Route: 048
  14. ADENOSINE TRIPHOSPHATE, DISODIUM SALT [Concomitant]
     Dosage: 1 UNK, 3/D
     Route: 048
  15. MIYA-BM                                 /JPN/ [Concomitant]
     Dosage: 1 UNK, 3/D
     Route: 048

REACTIONS (1)
  - CEREBRAL INFARCTION [None]
